FAERS Safety Report 8012596-1 (Version None)
Quarter: 2011Q4

REPORT INFORMATION
  Report Type: 
  Country: None (occurrence: None)
  Receive Date: 20111229
  Receipt Date: 20111219
  Transmission Date: 20120403
  Serious: Yes (Hospitalization)
  Sender: FDA-Public Use
  Company Number: US-BAYER-2011-033518

PATIENT
  Age: 15 Year
  Sex: Female
  Weight: 107 kg

DRUGS (3)
  1. YAZ [Suspect]
     Indication: CONTRACEPTION
     Dosage: UNK
     Dates: start: 20080101, end: 20080201
  2. METFORMIN HCL [Concomitant]
     Indication: MENSTRUATION IRREGULAR
     Dosage: 1 G, BID
     Route: 048
  3. YASMIN [Suspect]
     Indication: CONTRACEPTION
     Dosage: UNK
     Dates: start: 20080101, end: 20080701

REACTIONS (6)
  - PULMONARY EMBOLISM [None]
  - ANXIETY [None]
  - EMOTIONAL DISTRESS [None]
  - INJURY [None]
  - PAIN [None]
  - DEPRESSION [None]
